FAERS Safety Report 8262324 (Version 5)
Quarter: 2013Q3

REPORT INFORMATION
  Report Type: Spontaneous
  Country: US (occurrence: US)
  Receive Date: 20111123
  Receipt Date: 20130920
  Transmission Date: 20140515
  Serious: Yes (Death)
  Sender: FDA-Public Use
  Company Number: US-ALLERGAN-1114952US

PATIENT
  Age: 17 Year
  Sex: Male
  Weight: 70.23 kg

DRUGS (6)
  1. ACZONE [Suspect]
     Indication: ACNE
     Dosage: 1 DF, QAM
     Route: 061
     Dates: start: 20110627, end: 20111020
  2. BACTRIM DS [Concomitant]
     Indication: ACNE
     Dosage: 1 DF, BID
     Route: 048
     Dates: start: 20110627, end: 20111020
  3. ZIANA [Concomitant]
     Indication: ACNE
     Dosage: 1 DF, QD
     Route: 061
     Dates: start: 20110627
  4. MULTIVITAMIN [Concomitant]
     Indication: PRODUCT USED FOR UNKNOWN INDICATION
  5. FISH OIL [Concomitant]
     Indication: PRODUCT USED FOR UNKNOWN INDICATION
  6. CALCIUM [Concomitant]
     Indication: PRODUCT USED FOR UNKNOWN INDICATION

REACTIONS (2)
  - Completed suicide [Fatal]
  - Drug ineffective [Unknown]
